FAERS Safety Report 9787528 (Version 1)
Quarter: 2013Q4

REPORT INFORMATION
  Report Type: Spontaneous
  Country: US (occurrence: US)
  Receive Date: 20131230
  Receipt Date: 20131230
  Transmission Date: 20140711
  Serious: No
  Sender: FDA-Public Use
  Company Number: US-009507513-1312USA011396

PATIENT
  Age: 20 Year
  Sex: Female
  Weight: 60.77 kg

DRUGS (1)
  1. IMPLANON [Suspect]
     Indication: CONTRACEPTION
     Dosage: UNK; IN LEFT ARM
     Route: 059
     Dates: start: 20100730

REACTIONS (6)
  - Fall [Unknown]
  - Limb injury [Unknown]
  - Device expulsion [Unknown]
  - Pulmonary oedema [Unknown]
  - Pain [Unknown]
  - Incorrect drug administration duration [Unknown]
